FAERS Safety Report 21331831 (Version 1)
Quarter: 2022Q3

REPORT INFORMATION
  Report Type: Report from Study
  Country: ES (occurrence: ES)
  Receive Date: 20220914
  Receipt Date: 20220914
  Transmission Date: 20221027
  Serious: Yes (Life-Threatening, Hospitalization)
  Sender: FDA-Public Use
  Company Number: None

PATIENT
  Age: 67 Year
  Sex: Male

DRUGS (8)
  1. CARBOPLATIN [Suspect]
     Active Substance: CARBOPLATIN
     Indication: Product used for unknown indication
     Dosage: CYCLES EVERY 3 WEEKS , EFG, 1 VIAL OF 15 ML , THERAPY END DATE : NASK , STRENGTH : 10 MG/ML
     Route: 065
     Dates: start: 20220301
  2. TECENTRIQ [Suspect]
     Active Substance: ATEZOLIZUMAB
     Indication: Product used for unknown indication
     Dosage: 1 VIAL, THERAPY END DATE : NASK , STRENGTH : 1200 MG
     Route: 065
     Dates: start: 20220301
  3. ETOPOSIDE [Suspect]
     Active Substance: ETOPOSIDE
     Indication: Product used for unknown indication
     Dosage: CYCLES EVERY 3 WEEKS , STRENGTH : 20MG/ML , 1 VIAL OF 5 ML , THERAPY END DATE : NASK
     Route: 065
     Dates: start: 20220301
  4. ATORVASTATIN CINFA [Concomitant]
     Indication: Dyslipidaemia
     Dosage: 1 DOSAGE FORMS DAILY; 1 COMP DAY , ATORVASTATIN CINFA 20 MG FILM-COATED TABLETS EFG, 28 TABLETS
     Dates: start: 20210712
  5. ENALAPRIL [Concomitant]
     Active Substance: ENALAPRIL
     Indication: Hypertension
     Dosage: 1 DOSAGE FORMS DAILY; 1 COMP DAY, 20 MG EFG TABLETS, 28 TABLETS
  6. SPIRIVA RESPIMAT [Concomitant]
     Active Substance: TIOTROPIUM BROMIDE
     Indication: Chronic obstructive pulmonary disease
     Dosage: STRENGTH : 2.5 MICROGRAMS , 1 CARTRIDGE OF 60 PUFFS (30 DOSES)
     Dates: start: 20220216
  7. AMLODIPINE CINFA [Concomitant]
     Indication: Hypertension
     Dosage: 1 DOSAGE FORMS DAILY; 1 COMP DAY, AMLODIPINE CINFA 10 MG TABLETS EFG, 30 TABLETS ,   DURATION :2156
     Dates: start: 20160505, end: 20220330
  8. ATROALDO [Concomitant]
     Indication: Chronic obstructive pulmonary disease
     Dosage: 20 MICROGRAMS/PULSE, PRESSURE INHALATION SOLUTION, 1 INHALER OF 200 DOSES
     Dates: start: 20220216

REACTIONS (3)
  - Asthenia [Recovered/Resolved]
  - Neutropenia [Recovered/Resolved]
  - Pancytopenia [Recovered/Resolved]

NARRATIVE: CASE EVENT DATE: 20220314
